FAERS Safety Report 18000151 (Version 1)
Quarter: 2020Q3

REPORT INFORMATION
  Report Type: Spontaneous
  Country: CN (occurrence: CN)
  Receive Date: 20200709
  Receipt Date: 20200709
  Transmission Date: 20201103
  Serious: Yes (Hospitalization)
  Sender: FDA-Public Use
  Company Number: CN-BAYER-2020-138281

PATIENT
  Age: 56 Year
  Sex: Female
  Weight: 59 kg

DRUGS (1)
  1. GLUCOBAY [Suspect]
     Active Substance: ACARBOSE
     Indication: HYPERGLYCAEMIA
     Dosage: 50 MG, TID
     Route: 048
     Dates: start: 20190515, end: 20200622

REACTIONS (4)
  - Flatulence [Recovering/Resolving]
  - Syncope [None]
  - Abdominal pain [Recovering/Resolving]
  - Abdominal distension [Recovered/Resolved]

NARRATIVE: CASE EVENT DATE: 20200610
